FAERS Safety Report 9220525 (Version 1)
Quarter: 2013Q2

REPORT INFORMATION
  Report Type: Spontaneous
  Country: FR (occurrence: FR)
  Receive Date: 20130409
  Receipt Date: 20130409
  Transmission Date: 20140414
  Serious: Yes (Hospitalization, Other)
  Sender: FDA-Public Use
  Company Number: FR-PFIZER INC-2012149330

PATIENT
  Age: 31 Year
  Sex: Female

DRUGS (8)
  1. INIPOMP [Suspect]
     Dosage: 20 MG ,DAILY
     Route: 048
     Dates: start: 20120418, end: 20120513
  2. SALAZOPYRINE [Suspect]
     Indication: SPONDYLITIS
     Dosage: 1 DF, 1X/DAY
     Route: 048
     Dates: start: 20120418
  3. SALAZOPYRINE [Suspect]
     Dosage: 2 DF, DAILY
     Route: 048
  4. SALAZOPYRINE [Suspect]
     Dosage: 3 DF, DAILY
     Route: 048
  5. SALAZOPYRINE [Suspect]
     Dosage: 4 DF, DAILY
     Route: 048
     Dates: end: 20120513
  6. CERAZETTE [Suspect]
     Indication: CONTRACEPTION
     Dosage: 1 DOSAGE FORMS
     Route: 048
     Dates: start: 20120418
  7. AMOXICILLIN [Concomitant]
     Indication: BRONCHITIS
     Dosage: UNK
     Dates: start: 20120510, end: 20120515
  8. BREXIN [Concomitant]
     Dosage: 20 MG, UNK
     Dates: start: 20120418, end: 20120419

REACTIONS (1)
  - Drug reaction with eosinophilia and systemic symptoms [Recovered/Resolved]
